FAERS Safety Report 9303259 (Version 1)
Quarter: 2013Q2

REPORT INFORMATION
  Report Type: Spontaneous
  Country: US (occurrence: US)
  Receive Date: 20130522
  Receipt Date: 20130522
  Transmission Date: 20140414
  Serious: No
  Sender: FDA-Public Use
  Company Number: US-PFIZER INC-2013155702

PATIENT
  Age: 76 Year
  Sex: Female
  Weight: 68.93 kg

DRUGS (3)
  1. LYRICA [Suspect]
     Indication: ARTHRALGIA
     Dosage: 75 MG, 2X/DAY
     Route: 048
     Dates: start: 20130514
  2. LEVOXYL [Concomitant]
     Indication: HYPOTHYROIDISM
     Dosage: UNK
  3. LISINOPRIL [Concomitant]
     Indication: HYPERTENSION
     Dosage: UNK

REACTIONS (3)
  - Off label use [Unknown]
  - Arthralgia [Unknown]
  - Therapeutic response unexpected [Unknown]
